FAERS Safety Report 7344171-6 (Version None)
Quarter: 2011Q1

REPORT INFORMATION
  Report Type: 
  Country: None (occurrence: None)
  Receive Date: 20110310
  Receipt Date: 20100726
  Transmission Date: 20110831
  Serious: No
  Sender: FDA-Public Use
  Company Number: A0872259A

PATIENT
  Age: 67 Year
  Sex: Male

DRUGS (1)
  1. WALGREENS NICOTINE LOZENGE MINT 4MG [Suspect]

REACTIONS (4)
  - DYSPNOEA [None]
  - HYPERSENSITIVITY [None]
  - ASTHENIA [None]
  - FATIGUE [None]
